FAERS Safety Report 10168470 (Version 3)
Quarter: 2014Q2

REPORT INFORMATION
  Report Type: Spontaneous
  Country: JP (occurrence: JP)
  Receive Date: 20140513
  Receipt Date: 20140526
  Transmission Date: 20141212
  Serious: Yes (Hospitalization, Other)
  Sender: FDA-Public Use
  Company Number: JP-009507513-1405JPN005918

PATIENT
  Age: 46 Year
  Sex: Female

DRUGS (1)
  1. MARVELON [Suspect]
     Dosage: DAILY DOSAGE UNKNOWN
     Route: 048
     Dates: end: 2014

REACTIONS (2)
  - Peripheral artery thrombosis [Recovered/Resolved]
  - Pulmonary embolism [Recovered/Resolved]
